FAERS Safety Report 8477695-9 (Version None)
Quarter: 2012Q2

REPORT INFORMATION
  Report Type: 
  Country: None (occurrence: None)
  Receive Date: 20120629
  Receipt Date: 20120619
  Transmission Date: 20120825
  Serious: Yes (Hospitalization)
  Sender: FDA-Public Use
  Company Number: FR-JNJFOC-20120610583

PATIENT
  Sex: Male
  Weight: 63.8 kg

DRUGS (4)
  1. HUMIRA [Concomitant]
     Indication: CROHN'S DISEASE
     Dates: start: 20101215, end: 20111201
  2. PREDNISONE [Concomitant]
     Indication: CROHN'S DISEASE
     Dates: start: 20111104
  3. METHOTREXATE [Concomitant]
     Indication: CROHN'S DISEASE
     Dates: start: 20111020, end: 20111201
  4. REMICADE [Suspect]
     Indication: CROHN'S DISEASE
     Route: 042
     Dates: start: 20091029, end: 20101209

REACTIONS (1)
  - CROHN'S DISEASE [None]
